FAERS Safety Report 25082587 (Version 3)
Quarter: 2025Q2

REPORT INFORMATION
  Report Type: Report from Study
  Country: EG (occurrence: EG)
  Receive Date: 20250317
  Receipt Date: 20250519
  Transmission Date: 20250716
  Serious: Yes (Hospitalization, Other)
  Sender: NOVO NORDISK
  Company Number: EG-NOVOPROD-1387432

PATIENT
  Sex: Female

DRUGS (1)
  1. INSULIN HUMAN [Suspect]
     Active Substance: INSULIN HUMAN
     Indication: Diabetes mellitus
     Dosage: 40 IU, QD(20 IU AM AND 20 IU PM)

REACTIONS (3)
  - Hypoglycaemic coma [Unknown]
  - Diabetic hyperglycaemic coma [Unknown]
  - Device issue [Unknown]
